FAERS Safety Report 9523821 (Version 1)
Quarter: 2013Q3

REPORT INFORMATION
  Report Type: Spontaneous
  Country: US (occurrence: US)
  Receive Date: 20130916
  Receipt Date: 20130916
  Transmission Date: 20140515
  Serious: No
  Sender: FDA-Public Use
  Company Number: US-B.I. PHARMACEUTICALS,INC./RIDGEFIELD-2013-BI-27669BP

PATIENT
  Age: 62 Year
  Sex: Female

DRUGS (4)
  1. PRADAXA [Suspect]
     Indication: CEREBROVASCULAR ACCIDENT PROPHYLAXIS
     Dosage: 300 MG
     Route: 048
     Dates: start: 201308
  2. PRADAXA [Suspect]
     Indication: ATRIAL FIBRILLATION
  3. COUMADIN [Suspect]
  4. VASOTEC [Concomitant]
     Route: 048

REACTIONS (1)
  - Skin discolouration [Not Recovered/Not Resolved]
